FAERS Safety Report 16210934 (Version 2)
Quarter: 2019Q2

REPORT INFORMATION
  Report Type: Spontaneous
  Country: FI (occurrence: FI)
  Receive Date: 20190418
  Receipt Date: 20190524
  Transmission Date: 20190711
  Serious: Yes (Other)
  Sender: FDA-Public Use
  Company Number: FI-ABBVIE-19K-055-2747577-00

PATIENT
  Sex: Male

DRUGS (3)
  1. VENCLYXTO [Suspect]
     Active Substance: VENETOCLAX
     Dosage: DOSE INCREASED
     Route: 048
     Dates: start: 2019
  2. RITUXIMAB. [Concomitant]
     Active Substance: RITUXIMAB
     Indication: PRODUCT USED FOR UNKNOWN INDICATION
     Dates: start: 2019
  3. VENCLYXTO [Suspect]
     Active Substance: VENETOCLAX
     Indication: PRODUCT USED FOR UNKNOWN INDICATION
     Route: 048
     Dates: start: 20190313, end: 2019

REACTIONS (2)
  - Deep vein thrombosis [Unknown]
  - Neutropenic infection [Unknown]

NARRATIVE: CASE EVENT DATE: 2019
